FAERS Safety Report 20233911 (Version 1)
Quarter: 2021Q4

REPORT INFORMATION
  Report Type: Spontaneous
  Country: US (occurrence: US)
  Receive Date: 20211227
  Receipt Date: 20211227
  Transmission Date: 20220303
  Serious: Yes (Other)
  Sender: FDA-Public Use
  Company Number: US-BAYER-2021A273381

PATIENT
  Age: 60 Year
  Sex: Male

DRUGS (1)
  1. KOGENATE FS [Suspect]
     Active Substance: ANTIHEMOPHILIC FACTOR, HUMAN RECOMBINANT
     Dosage: 3133 IU, ONCE
     Route: 042
     Dates: start: 20211213

REACTIONS (2)
  - Haemorrhage [None]
  - Medical procedure [None]

NARRATIVE: CASE EVENT DATE: 20211213
